FAERS Safety Report 24680780 (Version 2)
Quarter: 2024Q4

REPORT INFORMATION
  Report Type: Report from Study
  Country: US (occurrence: US)
  Receive Date: 20241129
  Receipt Date: 20241201
  Transmission Date: 20250115
  Serious: Yes (Other)
  Sender: ABBVIE
  Company Number: US-ABBVIE-6020134

PATIENT
  Age: 65 Year
  Sex: Female

DRUGS (1)
  1. UPADACITINIB [Suspect]
     Active Substance: UPADACITINIB
     Indication: Crohn^s disease
     Route: 048
     Dates: start: 20240119

REACTIONS (7)
  - Epistaxis [Unknown]
  - Behcet^s syndrome [Unknown]
  - Polychondritis [Unknown]
  - Therapeutic response unexpected [Recovering/Resolving]
  - Nephrolithiasis [Unknown]
  - Choking [Unknown]
  - Thrombosis [Unknown]

NARRATIVE: CASE EVENT DATE: 20240101
